FAERS Safety Report 7304795-9 (Version None)
Quarter: 2011Q1

REPORT INFORMATION
  Report Type: 
  Country: None (occurrence: None)
  Receive Date: 20110222
  Receipt Date: 20110216
  Transmission Date: 20110831
  Serious: No
  Sender: FDA-Public Use
  Company Number: US-PFIZER INC-2011035143

PATIENT
  Sex: Female
  Weight: 50.794 kg

DRUGS (2)
  1. PRISTIQ [Suspect]
     Indication: FIBROMYALGIA
     Dosage: 100 MG, 1X/DAY
     Route: 048
     Dates: start: 20081201, end: 20110119
  2. PRISTIQ [Suspect]
     Dosage: 50 MG, 1X/DAY
     Route: 048
     Dates: start: 20110120, end: 20110201

REACTIONS (6)
  - DRUG WITHDRAWAL SYNDROME [None]
  - HYPERHIDROSIS [None]
  - MOOD SWINGS [None]
  - CRYING [None]
  - TREMOR [None]
  - DIZZINESS [None]
